FAERS Safety Report 5814577-2 (Version None)
Quarter: 2008Q3

REPORT INFORMATION
  Report Type: 
  Country: None (occurrence: None)
  Receive Date: 20080718
  Receipt Date: 20070912
  Transmission Date: 20090109
  Serious: No
  Sender: FDA-Public Use
  Company Number: US-KINGPHARMUSA00001-K200701182

PATIENT

DRUGS (6)
  1. LEVOXYL [Suspect]
     Indication: HYPOTHYROIDISM
     Dosage: 125 MCG, QD
     Route: 048
     Dates: start: 20010101, end: 20070909
  2. LEVOXYL [Suspect]
     Dosage: 125 MCG, QD X 6 DAYS, 62.5 MCG, QD ON 7TH DAY
     Route: 048
     Dates: start: 20070910, end: 20070911
  3. LEVOXYL [Suspect]
     Dosage: 100 MCG, QD
     Route: 048
     Dates: start: 20070912
  4. DIOVAN      /01319601/ [Concomitant]
     Indication: HYPERTENSION
     Dosage: 160 MG, QD
     Route: 048
     Dates: start: 20070301
  5. LOPRESSOR [Concomitant]
     Indication: PROPHYLAXIS
     Dosage: 12.5 MG, QD
     Route: 048
     Dates: start: 20070701
  6. LOVASTATIN [Concomitant]
     Indication: BLOOD CHOLESTEROL INCREASED
     Dosage: 40 MG, QD
     Route: 048
     Dates: start: 20020101

REACTIONS (8)
  - BLOOD CHOLESTEROL INCREASED [None]
  - FEELING HOT [None]
  - HEART RATE INCREASED [None]
  - HYPERHIDROSIS [None]
  - HYPERTENSION [None]
  - INSOMNIA [None]
  - PALPITATIONS [None]
  - PSYCHOMOTOR HYPERACTIVITY [None]
